FAERS Safety Report 5592651-6 (Version None)
Quarter: 2008Q1

REPORT INFORMATION
  Report Type: 
  Country: None (occurrence: None)
  Receive Date: 20080115
  Receipt Date: 20080109
  Transmission Date: 20080703
  Serious: Yes (Hospitalization)
  Sender: FDA-Public Use
  Company Number: US-BOEHRINGER INGELHEIM PHARMACEUTICALS, INC.-2007-BP-26191BP

PATIENT
  Age: 32 Year
  Sex: Male

DRUGS (3)
  1. DULCOLAX [Suspect]
     Indication: CONSTIPATION
     Route: 048
     Dates: start: 20071201
  2. DULCOLAX SUPPOSITORY [Suspect]
     Dates: start: 20071201
  3. MIRALAX [Concomitant]

REACTIONS (2)
  - CONSTIPATION [None]
  - DRUG INEFFECTIVE [None]
